FAERS Safety Report 25732157 (Version 1)
Quarter: 2025Q3

REPORT INFORMATION
  Report Type: Spontaneous
  Country: AU (occurrence: AU)
  Receive Date: 20250827
  Receipt Date: 20250827
  Transmission Date: 20251020
  Serious: Yes (Other)
  Sender: ADMA BIOLOGICS
  Company Number: AU-ADMA BIOLOGICS INC.-AU-2025ADM000250

PATIENT
  Age: 89 Year
  Sex: Male

DRUGS (2)
  1. HUMAN IMMUNOGLOBULIN G [Suspect]
     Active Substance: HUMAN IMMUNOGLOBULIN G
     Indication: Myasthenia gravis crisis
     Route: 042
  2. PYRIDOSTIGMINE [Suspect]
     Active Substance: PYRIDOSTIGMINE
     Indication: Myasthenia gravis
     Route: 065

REACTIONS (3)
  - Arteriospasm coronary [Recovering/Resolving]
  - Pneumonia [Unknown]
  - Off label use [Unknown]
